FAERS Safety Report 4361044-1 (Version None)
Quarter: 2004Q2

REPORT INFORMATION
  Report Type: 
  Country: None (occurrence: None)
  Receive Date: 20040519
  Receipt Date: 20040519
  Transmission Date: 20050107
  Serious: No
  Sender: FDA-Public Use
  Company Number: None

PATIENT
  Age: 50 Year
  Sex: Male
  Weight: 123.832 kg

DRUGS (1)
  1. OXALIPLATIN 173 MG IVPB [Suspect]
     Indication: COLON CANCER
     Dosage: IVPB OVER 120 MINS CYCLE #19
     Route: 042
     Dates: start: 20040428

REACTIONS (2)
  - PRURITUS [None]
  - URTICARIA [None]
